FAERS Safety Report 6609865-6 (Version None)
Quarter: 2010Q1

REPORT INFORMATION
  Report Type: 
  Country: None (occurrence: None)
  Receive Date: 20100302
  Receipt Date: 20100222
  Transmission Date: 20100710
  Serious: Yes (Hospitalization)
  Sender: FDA-Public Use
  Company Number: PHEH2010US02720

PATIENT
  Sex: Female

DRUGS (5)
  1. EXELON [Suspect]
     Dosage: 6 MG, UNK
     Dates: start: 20100209
  2. ZOLOFT [Concomitant]
  3. MICARDIS [Concomitant]
  4. CLONIDINE [Concomitant]
  5. FLONASE [Concomitant]

REACTIONS (3)
  - NAUSEA [None]
  - PAIN [None]
  - VOMITING [None]
